FAERS Safety Report 12616344 (Version 1)
Quarter: 2016Q3

REPORT INFORMATION
  Report Type: Spontaneous
  Country: US (occurrence: US)
  Receive Date: 20160802
  Receipt Date: 20160802
  Transmission Date: 20161109
  Serious: No
  Sender: FDA-Public Use
  Company Number: US-PERRIGO-16US014172

PATIENT
  Age: 1 Year
  Sex: Female
  Weight: 9.98 kg

DRUGS (2)
  1. CETIRIZINE HYDROCHLORIDE. [Suspect]
     Active Substance: CETIRIZINE HYDROCHLORIDE
     Indication: RHINORRHOEA
     Dosage: 2.5 MG, SINGLE
     Route: 048
     Dates: start: 20160309, end: 20160309
  2. CETIRIZINE HYDROCHLORIDE. [Suspect]
     Active Substance: CETIRIZINE HYDROCHLORIDE
     Indication: PERENNIAL ALLERGY

REACTIONS (1)
  - Croup infectious [Recovering/Resolving]

NARRATIVE: CASE EVENT DATE: 20160310
